FAERS Safety Report 4673235-0 (Version None)
Quarter: 2005Q2

REPORT INFORMATION
  Report Type: 
  Country: None (occurrence: None)
  Receive Date: 20050525
  Receipt Date: 20050518
  Transmission Date: 20051028
  Serious: Yes (Other)
  Sender: FDA-Public Use
  Company Number: US-BRISTOL-MYERS SQUIBB COMPANY-12976981

PATIENT
  Sex: Male

DRUGS (3)
  1. ERBITUX [Suspect]
     Dosage: LOADING DOSE. INTERRUPTED, RESTARTED AT RATE REDUCED BY 50 PERCENT.
  2. BENADRYL [Concomitant]
     Indication: PREMEDICATION
  3. DECADRON [Concomitant]
     Indication: PREMEDICATION

REACTIONS (3)
  - COUGH [None]
  - DYSPNOEA [None]
  - OXYGEN SATURATION DECREASED [None]
